FAERS Safety Report 24932551 (Version 1)
Quarter: 2025Q1

REPORT INFORMATION
  Report Type: Report from Study
  Country: CO (occurrence: CO)
  Receive Date: 20250205
  Receipt Date: 20250205
  Transmission Date: 20250408
  Serious: No
  Sender: EXELIXIS
  Company Number: CO-IPSEN Group, Research and Development-2024-17028

PATIENT
  Age: 68 Year
  Sex: Female
  Weight: 69 kg

DRUGS (16)
  1. CABOMETYX [Suspect]
     Active Substance: CABOZANTINIB S-MALATE
     Indication: Renal cell carcinoma
     Dosage: 1 TABLET EVERY 24 HOURS FOR 15 DAYS, FOLLOWED BY A BREAK OF 8 DAYS
     Route: 048
     Dates: start: 20240723, end: 20241007
  2. CABOMETYX [Suspect]
     Active Substance: CABOZANTINIB S-MALATE
     Dosage: 1 TABLET EVERY 24 HOURS FOR 15 DAYS, FOLLOWED BY A BREAK OF 8 DAYS
     Route: 048
     Dates: start: 20241115
  3. LEVOTHYROXINE [Concomitant]
     Active Substance: LEVOTHYROXINE
     Indication: Hypothyroidism
     Route: 048
     Dates: start: 2020
  4. CARVEDILOL [Concomitant]
     Active Substance: CARVEDILOL
     Indication: Cardiomegaly
     Dosage: ONGOING
     Route: 048
     Dates: start: 2020
  5. CARVEDILOL [Concomitant]
     Active Substance: CARVEDILOL
     Indication: Myocarditis
  6. CARVEDILOL [Concomitant]
     Active Substance: CARVEDILOL
     Indication: COVID-19
  7. AMLODIPINE [Concomitant]
     Active Substance: AMLODIPINE BESYLATE
     Indication: Hypertension
     Dosage: ONGOING
     Route: 048
     Dates: start: 2023
  8. EMPAGLIFLOZIN [Concomitant]
     Active Substance: EMPAGLIFLOZIN
     Indication: Metastases to pancreas
     Dosage: ONGOING
     Route: 048
     Dates: start: 202406
  9. ATORVASTATIN [Concomitant]
     Active Substance: ATORVASTATIN
     Indication: Blood cholesterol
     Dosage: ONGOING
     Route: 048
     Dates: start: 2014
  10. ATORVASTATIN [Concomitant]
     Active Substance: ATORVASTATIN
     Indication: Obesity
  11. ACETAMINOPHEN\HYDROCODONE [Concomitant]
     Active Substance: ACETAMINOPHEN\HYDROCODONE
     Indication: Pain
     Route: 048
     Dates: start: 202406
  12. CALCIUM [Concomitant]
     Active Substance: CALCIUM
     Indication: Metastases to bone
     Dosage: ONGOING
     Route: 048
     Dates: start: 1993
  13. ONDANSETRON [Concomitant]
     Active Substance: ONDANSETRON
     Indication: Vomiting
     Route: 048
     Dates: start: 2018
  14. LOPERAMIDE [Concomitant]
     Active Substance: LOPERAMIDE
     Indication: Diarrhoea
     Dosage: ONGOING
     Route: 048
     Dates: start: 2018
  15. ALENDRONIC ACID [Concomitant]
     Active Substance: ALENDRONIC ACID
     Indication: Metastases to bone
     Dosage: 4 MG, QD
     Route: 048
     Dates: start: 20240828, end: 20240828
  16. TRIMEBUTINE MALEATE [Concomitant]
     Active Substance: TRIMEBUTINE MALEATE
     Indication: Abdominal pain
     Dosage: 200 MG, QD
     Route: 048
     Dates: start: 202405

REACTIONS (19)
  - Toxicity to various agents [Not Recovered/Not Resolved]
  - Haemorrhoids [Not Recovered/Not Resolved]
  - Burning sensation [Not Recovered/Not Resolved]
  - Blister [Not Recovered/Not Resolved]
  - Quality of life decreased [Not Recovered/Not Resolved]
  - Diarrhoea [Not Recovered/Not Resolved]
  - Stomatitis [Not Recovered/Not Resolved]
  - Vomiting [Not Recovered/Not Resolved]
  - Decreased appetite [Not Recovered/Not Resolved]
  - Asthenia [Not Recovered/Not Resolved]
  - Dry skin [Not Recovered/Not Resolved]
  - Blood lactate dehydrogenase increased [Not Recovered/Not Resolved]
  - Platelet count decreased [Not Recovered/Not Resolved]
  - Palmar-plantar erythrodysaesthesia syndrome [Not Recovered/Not Resolved]
  - Malaise [Not Recovered/Not Resolved]
  - Hyperkeratosis [Not Recovered/Not Resolved]
  - Off label use [Unknown]
  - Product dose omission issue [Unknown]
  - Product supply issue [Unknown]

NARRATIVE: CASE EVENT DATE: 20240730
